FAERS Safety Report 21186776 (Version 3)
Quarter: 2022Q3

REPORT INFORMATION
  Report Type: Spontaneous
  Country: US (occurrence: US)
  Receive Date: 20220808
  Receipt Date: 20220816
  Transmission Date: 20221027
  Serious: No
  Sender: FDA-Public Use
  Company Number: US-BAYER-2022A106279

PATIENT
  Age: 30 Year
  Sex: Female

DRUGS (6)
  1. ASTEPRO [Suspect]
     Active Substance: AZELASTINE HYDROCHLORIDE
     Indication: Hypersensitivity
     Dates: start: 20220705, end: 20220710
  2. ASTEPRO [Suspect]
     Active Substance: AZELASTINE HYDROCHLORIDE
     Indication: Nasopharyngitis
  3. MOMETASONE FUROATE [Suspect]
     Active Substance: MOMETASONE FUROATE
  4. NEXIUM I.V. [Concomitant]
     Active Substance: ESOMEPRAZOLE SODIUM
  5. CLARITIN [Concomitant]
     Active Substance: LORATADINE
     Indication: Hypersensitivity
     Route: 048
  6. CLARITIN [Concomitant]
     Active Substance: LORATADINE
     Indication: Nasopharyngitis

REACTIONS (5)
  - Throat irritation [Recovering/Resolving]
  - Pain [Recovered/Resolved]
  - Drug ineffective [Unknown]
  - Pharyngeal swelling [Recovered/Resolved]
  - Device delivery system issue [None]

NARRATIVE: CASE EVENT DATE: 20220717
